FAERS Safety Report 15383475 (Version 1)
Quarter: 2018Q3

REPORT INFORMATION
  Report Type: Spontaneous
  Country: SE (occurrence: SE)
  Receive Date: 20180913
  Receipt Date: 20180913
  Transmission Date: 20181010
  Serious: Yes (Other)
  Sender: FDA-Public Use
  Company Number: SE-SHIRE-SE201834633

PATIENT

DRUGS (4)
  1. ELVANSE VUXEN [Suspect]
     Active Substance: LISDEXAMFETAMINE DIMESYLATE
     Dosage: 70 MG, 1X/DAY:QD (30 MG IN TEH MORNING AND 40 MG LATER IN THE DAY)
     Route: 065
     Dates: start: 20180818
  2. ELVANSE VUXEN [Suspect]
     Active Substance: LISDEXAMFETAMINE DIMESYLATE
     Indication: PRODUCT USED FOR UNKNOWN INDICATION
     Dosage: 30 MG, 1X/DAY:QD
     Route: 065
     Dates: start: 20180714
  3. ELVANSE VUXEN [Suspect]
     Active Substance: LISDEXAMFETAMINE DIMESYLATE
     Indication: OFF LABEL USE
     Dosage: 40 MG, 1X/DAY:QD
     Route: 065
     Dates: start: 20180803
  4. ELVANSE VUXEN [Suspect]
     Active Substance: LISDEXAMFETAMINE DIMESYLATE
     Dosage: 90 MG, 1X/DAY:QD
     Route: 065

REACTIONS (13)
  - Food craving [Unknown]
  - Chest discomfort [Unknown]
  - Weight decreased [Unknown]
  - Psychomotor hyperactivity [Unknown]
  - Irritability [Unknown]
  - Infection [Unknown]
  - Accidental exposure to product [Unknown]
  - Stress [Unknown]
  - Off label use [Unknown]
  - Feeling abnormal [Unknown]
  - Affect lability [Unknown]
  - Anxiety [Unknown]
  - Drug ineffective [Unknown]
